FAERS Safety Report 6543315-3 (Version None)
Quarter: 2010Q1

REPORT INFORMATION
  Report Type: 
  Country: None (occurrence: None)
  Receive Date: 20100120
  Receipt Date: 20100112
  Transmission Date: 20100710
  Serious: Yes (Other)
  Sender: FDA-Public Use
  Company Number: US-JNJFOC-20100105231

PATIENT
  Age: 48 Year
  Sex: Female
  Weight: 79.38 kg

DRUGS (3)
  1. MOTRIN IB [Suspect]
  2. MOTRIN IB [Suspect]
     Indication: ARTHRALGIA
  3. VITAMIN D [Concomitant]

REACTIONS (1)
  - HAEMORRHAGE [None]
